FAERS Safety Report 21493643 (Version 1)
Quarter: 2022Q4

REPORT INFORMATION
  Report Type: Spontaneous
  Country: US (occurrence: None)
  Receive Date: 20221021
  Receipt Date: 20221021
  Transmission Date: 20230113
  Serious: Yes (Other)
  Sender: FDA-Public Use
  Company Number: None

PATIENT
  Age: 19 Year
  Sex: Female

DRUGS (1)
  1. EPIDIOLEX [Suspect]
     Active Substance: CANNABIDIOL
     Dates: start: 20220808

REACTIONS (5)
  - Inappropriate affect [None]
  - Staring [None]
  - Irritability [None]
  - Stoma site erythema [None]
  - Stoma site irritation [None]

NARRATIVE: CASE EVENT DATE: 20220824
